FAERS Safety Report 7075401-6 (Version None)
Quarter: 2010Q4

REPORT INFORMATION
  Report Type: 
  Country: None (occurrence: None)
  Receive Date: 20101030
  Receipt Date: 20101005
  Transmission Date: 20110411
  Serious: No
  Sender: FDA-Public Use
  Company Number: US-WYE-H17330310

PATIENT
  Sex: Male

DRUGS (1)
  1. PRISTIQ [Suspect]
     Indication: BIPOLAR DISORDER
     Dosage: 50 MG, UNSPECIFIED FREQUENCY
     Dates: start: 20100831

REACTIONS (2)
  - MIDDLE INSOMNIA [None]
  - NAUSEA [None]
